FAERS Safety Report 10166416 (Version 1)
Quarter: 2014Q2

REPORT INFORMATION
  Report Type: Spontaneous
  Country: US (occurrence: None)
  Receive Date: 20140509
  Receipt Date: 20140509
  Transmission Date: 20141212
  Serious: Yes (Death)
  Sender: FDA-Public Use
  Company Number: None

PATIENT
  Age: 60 Year
  Sex: Female
  Weight: 0 kg

DRUGS (11)
  1. LETAIRIS 10MG GILEAD [Suspect]
     Indication: PORTOPULMONARY HYPERTENSION
     Dosage: LETAIRIS 10MG, 1 TAB PO DAILY, ORAL
     Route: 048
     Dates: start: 201107
  2. LASIZ [Concomitant]
  3. REMODULIN [Concomitant]
  4. ALDACTONE [Concomitant]
  5. IMDUR [Concomitant]
  6. INDERAL [Concomitant]
  7. NEURONTIN [Concomitant]
  8. AVASTIN [Concomitant]
  9. EPOGEN [Concomitant]
  10. PRILOSEC [Concomitant]
  11. PREMARIN [Concomitant]

REACTIONS (5)
  - Hepatic failure [None]
  - Pulmonary hypertension [None]
  - Hypotension [None]
  - Respiratory failure [None]
  - Cardiac arrest [None]
